FAERS Safety Report 22266814 (Version 1)
Quarter: 2023Q2

REPORT INFORMATION
  Report Type: Spontaneous
  Country: US (occurrence: US)
  Receive Date: 20230428
  Receipt Date: 20230428
  Transmission Date: 20230722
  Serious: Yes (Other)
  Sender: FDA-Public Use
  Company Number: US-TEVA-2023-US-2882345

PATIENT
  Age: 45 Year
  Sex: Male

DRUGS (3)
  1. DESIPRAMINE [Suspect]
     Active Substance: DESIPRAMINE
     Indication: Depression
     Dosage: 150 MILLIGRAM DAILY;
     Route: 065
  2. BUPROPION [Concomitant]
     Active Substance: BUPROPION
     Indication: Depression
     Dosage: 400 MILLIGRAM DAILY;
     Route: 065
  3. CLONAZEPAM [Concomitant]
     Active Substance: CLONAZEPAM
     Indication: Depression
     Dosage: AS NEEDED
     Route: 065

REACTIONS (2)
  - Chronotropic incompetence [Recovered/Resolved]
  - Exercise tolerance decreased [Recovered/Resolved]
